FAERS Safety Report 8166988-0 (Version None)
Quarter: 2012Q1

REPORT INFORMATION
  Report Type: 
  Country: None (occurrence: None)
  Receive Date: 20120227
  Receipt Date: 20120215
  Transmission Date: 20120608
  Serious: Yes (Other)
  Sender: FDA-Public Use
  Company Number: CA-NOVOPROD-340614

PATIENT
  Age: 47 Year
  Sex: Female
  Weight: 117.1 kg

DRUGS (5)
  1. CRESTOR [Concomitant]
     Dosage: 10 MG, QD
     Route: 065
  2. RAMIPRIL [Concomitant]
     Dosage: 10 MG, QD
  3. METFORMIN HYDROCHLORIDE [Concomitant]
     Dosage: 1000 MG, BID
  4. VICTOZA [Suspect]
     Indication: TYPE 2 DIABETES MELLITUS
     Dosage: 1.2 MG, QD
     Route: 065
     Dates: start: 20110701, end: 20111026
  5. NADOLOL [Concomitant]
     Dosage: 160 MG, QD

REACTIONS (1)
  - GOITRE [None]
